FAERS Safety Report 6732579-9 (Version None)
Quarter: 2010Q2

REPORT INFORMATION
  Report Type: 
  Country: None (occurrence: None)
  Receive Date: 20100519
  Receipt Date: 20100511
  Transmission Date: 20101027
  Serious: Yes (Life-Threatening, Hospitalization, Other)
  Sender: FDA-Public Use
  Company Number: DE-BRISTOL-MYERS SQUIBB COMPANY-15109754

PATIENT
  Age: 58 Year
  Sex: Male

DRUGS (9)
  1. ERBITUX [Suspect]
     Indication: HYPOPHARYNGEAL CANCER
     Dosage: NO OF INFUSION=10
     Route: 042
     Dates: start: 20100218, end: 20100423
  2. RADIATION THERAPY [Suspect]
     Indication: HYPOPHARYNGEAL CANCER
     Dosage: DF=1.8GY/70.2GY RECENT ADMINISTRATION ON 6MAY10 THERAPY DURATION=55 DAYS
     Dates: start: 20100311
  3. FLUCONAZOLE [Concomitant]
     Dates: start: 20100311
  4. NOVAMINSULFON [Concomitant]
     Dosage: DF=GTT
     Dates: start: 20100201
  5. TEPILTA [Concomitant]
     Dosage: 3X PER DAY AS REQUIRED
     Dates: start: 20100301
  6. TRAMADOL HCL [Concomitant]
     Dosage: DF=GTT
     Dates: start: 20100301
  7. NYSTATIN [Concomitant]
     Dosage: BRAND=ADICLAIR MOUTH GEL
  8. BEPANTHEN [Concomitant]
     Dosage: FORMULATION=OINTMENT ALSO TAKEN BEPANTHEN/LIDOCAIN(MOUTH WASH) FROM 11MAR10
  9. LIDOCAINE [Concomitant]
     Dosage: BRAND=BEPANTHEN/LIDOCAIN(MOUTH WASH)
     Dates: start: 20100311

REACTIONS (3)
  - HEPATIC FAILURE [None]
  - RESPIRATORY FAILURE [None]
  - RIGHT VENTRICULAR FAILURE [None]
